FAERS Safety Report 18683330 (Version 1)
Quarter: 2020Q4

REPORT INFORMATION
  Report Type: Spontaneous
  Country: ES (occurrence: ES)
  Receive Date: 20201230
  Receipt Date: 20201230
  Transmission Date: 20210114
  Serious: Yes (Other)
  Sender: FDA-Public Use
  Company Number: ES-TAKEDA-2020TUS054472

PATIENT
  Age: 63 Year
  Sex: Male
  Weight: 71 kg

DRUGS (12)
  1. REVESTIVE [Suspect]
     Active Substance: TEDUGLUTIDE
     Indication: MALNUTRITION
  2. ENALAPRIL RATIOPHARM [Concomitant]
     Active Substance: ENALAPRIL
     Indication: HYPERTENSION
     Dosage: 10 MILLIGRAM, QD
     Route: 048
     Dates: start: 20191106
  3. REVESTIVE [Suspect]
     Active Substance: TEDUGLUTIDE
     Indication: MALNUTRITION
  4. HALCION [Concomitant]
     Active Substance: TRIAZOLAM
     Dosage: 0.25 MILLIGRAM, QD
     Route: 048
     Dates: start: 20190117
  5. REVESTIVE [Suspect]
     Active Substance: TEDUGLUTIDE
     Indication: MALNUTRITION
  6. LEVEMIR [Concomitant]
     Active Substance: INSULIN DETEMIR
     Dosage: 25 INTERNATIONAL UNIT, QD
     Route: 058
     Dates: start: 20200325
  7. REVESTIVE [Suspect]
     Active Substance: TEDUGLUTIDE
     Indication: MALNUTRITION
  8. PANTOPRAZOL CINFA [Concomitant]
     Indication: GASTROOESOPHAGEAL REFLUX DISEASE
     Dosage: 40 MILLIGRAM, 12 HRS
     Route: 048
     Dates: start: 20170529
  9. REVESTIVE [Suspect]
     Active Substance: TEDUGLUTIDE
     Indication: SHORT-BOWEL SYNDROME
     Dosage: 3.35 MILLIGRAM, QD
     Route: 058
     Dates: start: 20200224
  10. REVESTIVE [Suspect]
     Active Substance: TEDUGLUTIDE
     Indication: SHORT-BOWEL SYNDROME
     Dosage: 3.35 MILLIGRAM, QD
     Route: 058
     Dates: start: 20200224
  11. REVESTIVE [Suspect]
     Active Substance: TEDUGLUTIDE
     Indication: SHORT-BOWEL SYNDROME
     Dosage: 3.35 MILLIGRAM, QD
     Route: 058
     Dates: start: 20200224
  12. REVESTIVE [Suspect]
     Active Substance: TEDUGLUTIDE
     Indication: SHORT-BOWEL SYNDROME
     Dosage: 3.35 MILLIGRAM, QD
     Route: 058
     Dates: start: 20200224

REACTIONS (1)
  - Pancreatic cyst [Not Recovered/Not Resolved]

NARRATIVE: CASE EVENT DATE: 20200817
